FAERS Safety Report 16595209 (Version 1)
Quarter: 2019Q3

REPORT INFORMATION
  Report Type: Spontaneous
  Country: US (occurrence: US)
  Receive Date: 20190718
  Receipt Date: 20190718
  Transmission Date: 20191004
  Serious: No
  Sender: FDA-Public Use
  Company Number: US-ASTRAZENECA-2019SE98579

PATIENT
  Sex: Female

DRUGS (8)
  1. REMERON [Concomitant]
     Active Substance: MIRTAZAPINE
  2. ZOFRAN [Concomitant]
     Active Substance: ONDANSETRON HYDROCHLORIDE
  3. REVATIO [Concomitant]
     Active Substance: SILDENAFIL CITRATE
  4. PRILOSEC [Suspect]
     Active Substance: OMEPRAZOLE MAGNESIUM
     Route: 048
  5. PERIACTIN [Concomitant]
     Active Substance: CYPROHEPTADINE HYDROCHLORIDE
  6. COUMADIN [Concomitant]
     Active Substance: WARFARIN SODIUM
  7. CREON [Concomitant]
     Active Substance: PANCRELIPASE AMYLASE\PANCRELIPASE LIPASE\PANCRELIPASE PROTEASE
  8. TREPROSTINIL. [Concomitant]
     Active Substance: TREPROSTINIL

REACTIONS (8)
  - Seasonal allergy [Unknown]
  - Pulmonary arterial pressure increased [Unknown]
  - Somnolence [Unknown]
  - Pallor [Unknown]
  - Feeding disorder [Unknown]
  - Dark circles under eyes [Unknown]
  - Diarrhoea [Unknown]
  - Gastrointestinal pain [Unknown]
